FAERS Safety Report 9318620 (Version 1)
Quarter: 2013Q2

REPORT INFORMATION
  Report Type: Spontaneous
  Country: GB (occurrence: GB)
  Receive Date: 20130530
  Receipt Date: 20130530
  Transmission Date: 20140414
  Serious: Yes (Other)
  Sender: FDA-Public Use
  Company Number: GB-TEVA-375862ISR

PATIENT
  Sex: Male

DRUGS (1)
  1. SIMVASTATIN [Suspect]
     Indication: BLOOD CHOLESTEROL INCREASED
     Dosage: 40 MILLIGRAM DAILY; DOSE NOT STATED:40 MG
     Route: 048
     Dates: start: 20071019

REACTIONS (4)
  - Atrial tachycardia [Unknown]
  - Muscle spasms [Unknown]
  - Drug interaction [Unknown]
  - Hypotension [Unknown]
